FAERS Safety Report 9689399 (Version 1)
Quarter: 2013Q4

REPORT INFORMATION
  Report Type: Report from Study
  Country: BR (occurrence: BR)
  Receive Date: 20131114
  Receipt Date: 20131114
  Transmission Date: 20140711
  Serious: Yes (Other)
  Sender: FDA-Public Use
  Company Number: BR-US-EMD SERONO, INC.-7248768

PATIENT
  Sex: Female

DRUGS (2)
  1. REBIF [Suspect]
     Indication: MULTIPLE SCLEROSIS
     Dates: start: 20071112
  2. REBIF [Suspect]
     Dates: start: 20130905

REACTIONS (3)
  - Labyrinthitis [Unknown]
  - Muscular weakness [Unknown]
  - Sensation of heaviness [Unknown]
